FAERS Safety Report 7109897-8 (Version None)
Quarter: 2010Q4

REPORT INFORMATION
  Report Type: 
  Country: None (occurrence: None)
  Receive Date: 20101118
  Receipt Date: 20101109
  Transmission Date: 20110411
  Serious: Yes (Hospitalization)
  Sender: FDA-Public Use
  Company Number: US-ELI_LILLY_AND_COMPANY-US201011002749

PATIENT
  Age: 83 Year
  Sex: Male

DRUGS (7)
  1. GEMCITABINE HCL [Suspect]
     Indication: PANCREATIC CARCINOMA
     Dosage: 1000 MG/M2, UNKNOWN
     Route: 065
     Dates: start: 20100928, end: 20101102
  2. OTHER PHARMA COMPANY INV DRUG [Suspect]
     Indication: PANCREATIC CARCINOMA
     Dosage: UNK, UNKNOWN
     Route: 065
  3. ACTOS [Concomitant]
  4. LORTAB [Concomitant]
  5. AMARYL [Concomitant]
  6. HYDROCHLOROTHIAZIDE [Concomitant]
  7. WARFARIN [Concomitant]

REACTIONS (3)
  - ABDOMINAL PAIN [None]
  - ANAEMIA [None]
  - HYPOTENSION [None]
